FAERS Safety Report 9577852 (Version 1)
Quarter: 2013Q4

REPORT INFORMATION
  Report Type: Spontaneous
  Country: US (occurrence: US)
  Receive Date: 20131001
  Receipt Date: 20131001
  Transmission Date: 20140711
  Serious: No
  Sender: FDA-Public Use
  Company Number: US-AMGEN-USASP2013010166

PATIENT
  Sex: Male

DRUGS (4)
  1. ENBREL [Suspect]
     Indication: PSORIASIS
     Dosage: 50 MG, EVERY 3-4 WEEKS
     Route: 058
  2. VITAMIN A                          /00056001/ [Concomitant]
     Dosage: UNK
  3. VITAMIN B-12 [Concomitant]
     Dosage: 100 MUG, UNK
  4. DOXYCYCLINE [Concomitant]
     Dosage: 20 MG, UNK

REACTIONS (3)
  - Malaise [Unknown]
  - Rhinorrhoea [Unknown]
  - Cough [Unknown]
